FAERS Safety Report 9407512 (Version 1)
Quarter: 2013Q3

REPORT INFORMATION
  Report Type: Spontaneous
  Country: GB (occurrence: GB)
  Receive Date: 20130718
  Receipt Date: 20130718
  Transmission Date: 20140515
  Serious: Yes (Hospitalization)
  Sender: FDA-Public Use
  Company Number: GB-JNJFOC-20130706721

PATIENT
  Age: 63 Year
  Sex: Male
  Weight: 102.95 kg

DRUGS (9)
  1. XARELTO [Suspect]
     Indication: PRODUCT USED FOR UNKNOWN INDICATION
     Route: 048
     Dates: start: 20130528, end: 20130624
  2. GLYCERYL TRINITRATE [Concomitant]
     Route: 065
     Dates: start: 20130318, end: 20130415
  3. ATORVASTATIN [Concomitant]
     Route: 065
     Dates: start: 20130318
  4. NICORANDIL [Concomitant]
     Route: 065
     Dates: start: 20130318
  5. CLOPIDOGREL [Concomitant]
     Route: 065
     Dates: start: 20130318
  6. FUROSEMIDE [Concomitant]
     Route: 065
     Dates: start: 20130318
  7. ATENOLOL [Concomitant]
     Route: 065
     Dates: start: 20130318
  8. ALLOPURINOL [Concomitant]
     Route: 065
     Dates: start: 20130318
  9. CANDESARTAN [Concomitant]
     Route: 065
     Dates: start: 20130318

REACTIONS (5)
  - Gingival bleeding [Unknown]
  - Blood pressure decreased [Unknown]
  - Pain in extremity [Unknown]
  - Rectal haemorrhage [Unknown]
  - Contusion [Unknown]
